FAERS Safety Report 16836923 (Version 3)
Quarter: 2019Q3

REPORT INFORMATION
  Report Type: Spontaneous
  Country: US (occurrence: US)
  Receive Date: 20190923
  Receipt Date: 20190928
  Transmission Date: 20191005
  Serious: Yes (Life-Threatening, Hospitalization, Other)
  Sender: FDA-Public Use
  Company Number: US-ABBVIE-19P-163-2931924-00

PATIENT
  Age: 56 Year
  Sex: Female
  Weight: 115.32 kg

DRUGS (18)
  1. FOLVITE [Concomitant]
     Active Substance: FOLIC ACID
     Indication: PRODUCT USED FOR UNKNOWN INDICATION
     Route: 048
     Dates: end: 20181226
  2. DELTASONE [Concomitant]
     Active Substance: PREDNISONE
     Indication: PRODUCT USED FOR UNKNOWN INDICATION
     Dosage: FOR 5 DAYS
     Route: 048
  3. ANCEF [Concomitant]
     Active Substance: CEFAZOLIN SODIUM
     Indication: PRODUCT USED FOR UNKNOWN INDICATION
     Dosage: 2GRAM/100ML EVERY 8 HOURS
  4. MIRALAX [Concomitant]
     Active Substance: POLYETHYLENE GLYCOL 3350
     Indication: PRODUCT USED FOR UNKNOWN INDICATION
     Dosage: PACKET
     Route: 048
  5. COLACE [Concomitant]
     Active Substance: DOCUSATE SODIUM
     Indication: PRODUCT USED FOR UNKNOWN INDICATION
     Route: 048
  6. MULTIVITAMINES WITH IRON [Concomitant]
     Indication: PRODUCT USED FOR UNKNOWN INDICATION
     Route: 048
  7. NEURONTIN [Concomitant]
     Active Substance: GABAPENTIN
     Indication: PRODUCT USED FOR UNKNOWN INDICATION
     Route: 048
     Dates: end: 20181226
  8. ARAVA [Suspect]
     Active Substance: LEFLUNOMIDE
     Indication: PRODUCT USED FOR UNKNOWN INDICATION
     Route: 048
  9. CYMBALTA [Concomitant]
     Active Substance: DULOXETINE HYDROCHLORIDE
     Indication: PRODUCT USED FOR UNKNOWN INDICATION
     Route: 048
     Dates: end: 20181226
  10. DULCOLAX NOS [Concomitant]
     Active Substance: BISACODYL OR DOCUSATE SODIUM
     Indication: PRODUCT USED FOR UNKNOWN INDICATION
     Route: 054
  11. FERROUS GLUCONATE [Concomitant]
     Active Substance: FERROUS GLUCONATE
     Indication: PRODUCT USED FOR UNKNOWN INDICATION
     Dosage: FOR 10 DAYS
     Route: 048
  12. MOBIC [Concomitant]
     Active Substance: MELOXICAM
     Indication: PRODUCT USED FOR UNKNOWN INDICATION
     Route: 048
  13. SENOKOT [Concomitant]
     Active Substance: SENNOSIDES
     Indication: PRODUCT USED FOR UNKNOWN INDICATION
     Dosage: 2 TABLETS NIGHTLY AS NEEDED
     Route: 048
  14. DELTASONE [Concomitant]
     Active Substance: PREDNISONE
     Route: 048
  15. NEURONTIN [Concomitant]
     Active Substance: GABAPENTIN
     Route: 048
     Dates: end: 20181226
  16. HUMIRA [Suspect]
     Active Substance: ADALIMUMAB
     Indication: PSORIATIC ARTHROPATHY
     Route: 058
     Dates: start: 20181018
  17. PRILOSEC [Concomitant]
     Active Substance: OMEPRAZOLE MAGNESIUM
     Indication: PRODUCT USED FOR UNKNOWN INDICATION
     Dosage: BEFORE BREAKFAST
     Route: 048
     Dates: end: 20181226
  18. PLAQUENIL [Concomitant]
     Active Substance: HYDROXYCHLOROQUINE SULFATE
     Indication: PRODUCT USED FOR UNKNOWN INDICATION
     Route: 048
     Dates: end: 20181226

REACTIONS (39)
  - Hiatus hernia [Unknown]
  - Urinary retention [Not Recovered/Not Resolved]
  - Scleral oedema [Unknown]
  - Hyporeflexia [Unknown]
  - Leukocytosis [Unknown]
  - Hepatitis [Unknown]
  - Pain [Unknown]
  - Pleural effusion [Unknown]
  - Tongue oedema [Not Recovered/Not Resolved]
  - Respiratory failure [Not Recovered/Not Resolved]
  - Pulmonary mass [Unknown]
  - Localised oedema [Unknown]
  - Neck pain [Not Recovered/Not Resolved]
  - Muscular weakness [Not Recovered/Not Resolved]
  - Transaminases increased [Unknown]
  - Atelectasis [Unknown]
  - Swelling face [Unknown]
  - Staphylococcal bacteraemia [Unknown]
  - Arthritis bacterial [Unknown]
  - Pneumonia [Unknown]
  - Spinal cord injury [Not Recovered/Not Resolved]
  - Anaemia [Unknown]
  - Urinary incontinence [Not Recovered/Not Resolved]
  - Candiduria [Unknown]
  - Paralysis [Not Recovered/Not Resolved]
  - Cognitive disorder [Unknown]
  - Motor dysfunction [Unknown]
  - Cardiomegaly [Unknown]
  - Bursitis [Unknown]
  - Extradural abscess [Not Recovered/Not Resolved]
  - Cervical cord compression [Unknown]
  - Hypophagia [Unknown]
  - Pulmonary embolism [Unknown]
  - Carbon dioxide decreased [Not Recovered/Not Resolved]
  - Blood potassium decreased [Unknown]
  - Immunosuppression [Not Recovered/Not Resolved]
  - Lethargy [Unknown]
  - Acute kidney injury [Unknown]
  - Pharyngeal disorder [Unknown]

NARRATIVE: CASE EVENT DATE: 2018
